FAERS Safety Report 6767923-X (Version None)
Quarter: 2010Q2

REPORT INFORMATION
  Report Type: 
  Country: None (occurrence: None)
  Receive Date: 20100610
  Receipt Date: 20100531
  Transmission Date: 20101027
  Serious: Yes (Hospitalization)
  Sender: FDA-Public Use
  Company Number: 605434

PATIENT
  Age: 62 Year
  Sex: Male

DRUGS (6)
  1. IRINOTECAN HYDROCHLORIDE [Suspect]
     Dosage: 190 MG MILLIGRAM(S), INTRAVENOUS
     Route: 042
     Dates: start: 20100308, end: 20100406
  2. ERBITUX [Suspect]
     Dosage: 500 MG MILLIGRAM(S)
     Dates: start: 20100305, end: 20100406
  3. (TRIMETON /00072502/) [Concomitant]
  4. (KYTRIL /01178107/) [Concomitant]
  5. (URBASON  /00049601/) [Concomitant]
  6. (TAREG) [Concomitant]

REACTIONS (1)
  - SUPRAVENTRICULAR TACHYCARDIA [None]
